FAERS Safety Report 21598249 (Version 2)
Quarter: 2022Q4

REPORT INFORMATION
  Report Type: Spontaneous
  Country: CA (occurrence: None)
  Receive Date: 20221115
  Receipt Date: 20221209
  Transmission Date: 20230112
  Serious: Yes (Other)
  Sender: FDA-Public Use
  Company Number: 2022A367849

PATIENT
  Age: 65 Year
  Sex: Male

DRUGS (1)
  1. BENRALIZUMAB [Suspect]
     Active Substance: BENRALIZUMAB
     Indication: Asthma
     Dosage: 30MG/ML EVERY EIGHT WEEKS
     Route: 058

REACTIONS (13)
  - Blastomycosis [Unknown]
  - Lower respiratory tract congestion [Unknown]
  - Dyspnoea [Unknown]
  - Productive cough [Unknown]
  - Weight decreased [Unknown]
  - Rhonchi [Unknown]
  - Forced expiratory volume decreased [Unknown]
  - Natural killer cell count decreased [Unknown]
  - Aspergillus infection [Unknown]
  - Mycobacterium avium complex infection [Unknown]
  - Pasteurella infection [Unknown]
  - Lung opacity [Unknown]
  - Drug ineffective [Unknown]
